FAERS Safety Report 13907159 (Version 2)
Quarter: 2017Q4

REPORT INFORMATION
  Report Type: Spontaneous
  Country: JP (occurrence: JP)
  Receive Date: 20170825
  Receipt Date: 20171012
  Transmission Date: 20180320
  Serious: Yes (Hospitalization, Other)
  Sender: FDA-Public Use
  Company Number: JP-GILEAD-2017-0288408

PATIENT
  Age: 80 Year
  Sex: Female
  Weight: 48.9 kg

DRUGS (1)
  1. HARVONI [Suspect]
     Active Substance: LEDIPASVIR\SOFOSBUVIR
     Indication: HEPATITIS C
     Dosage: 1 DF, QD (AFTER BREAKFAST)
     Route: 048
     Dates: start: 20170811

REACTIONS (7)
  - Enterocolitis [Recovered/Resolved]
  - Pleural effusion [Unknown]
  - Drug dose omission [Unknown]
  - Hyperthermia [Recovered/Resolved]
  - Diarrhoea [Recovered/Resolved]
  - Sepsis [Unknown]
  - Ascites [Unknown]

NARRATIVE: CASE EVENT DATE: 20170812
